FAERS Safety Report 10067731 (Version 1)
Quarter: 2014Q2

REPORT INFORMATION
  Report Type: Spontaneous
  Country: US (occurrence: US)
  Receive Date: 20140409
  Receipt Date: 20140409
  Transmission Date: 20141212
  Serious: Yes (Other)
  Sender: FDA-Public Use
  Company Number: PHEH2014US006551

PATIENT
  Sex: 0

DRUGS (1)
  1. TASIGNA [Suspect]

REACTIONS (4)
  - Gastroenteritis salmonella [Unknown]
  - Arthralgia [Unknown]
  - Pain [Unknown]
  - White blood cell count increased [Unknown]
